FAERS Safety Report 9201706 (Version 2)
Quarter: 2013Q2

REPORT INFORMATION
  Report Type: Spontaneous
  Country: JP (occurrence: JP)
  Receive Date: 20130401
  Receipt Date: 20130430
  Transmission Date: 20140414
  Serious: Yes (Other)
  Sender: FDA-Public Use
  Company Number: JP-PFIZER INC-2013099369

PATIENT
  Age: 78 Year
  Sex: Male

DRUGS (10)
  1. ZITHROMAC [Suspect]
     Indication: BACTERIAL INFECTION
     Dosage: 2 G DAILY
     Route: 048
     Dates: start: 20130318
  2. MICARDIS [Concomitant]
     Indication: HYPERTENSION
     Dosage: 40 MG, UNK
     Route: 048
  3. RIBALL [Concomitant]
     Indication: HYPERURICAEMIA
     Dosage: 100 MG, 1X/DAY
     Route: 048
  4. NORVASC [Concomitant]
     Indication: PROPHYLAXIS
     Dosage: 5 MG, 1X/DAY
     Route: 048
  5. SELECTOL [Concomitant]
     Indication: HYPERTENSION
     Dosage: 100 MG, UNK
     Route: 048
  6. GASTER [Concomitant]
     Indication: GASTRITIS
     Dosage: 20 MG, 2X/DAY
     Route: 048
  7. HUSCODE [Concomitant]
     Indication: COUGH
     Dosage: 2 DF, 3X/DAY
     Route: 048
  8. MUCOSOLVAN [Concomitant]
     Indication: SPUTUM ABNORMAL
     Dosage: 15 MG, 3X/DAY
     Route: 048
  9. RESPLEN [Concomitant]
     Indication: COUGH
     Dosage: 30 MG, 3X/DAY
     Route: 048
  10. RESPLEN [Concomitant]
     Indication: SPUTUM ABNORMAL

REACTIONS (1)
  - Haematuria [Unknown]
